APPROVED DRUG PRODUCT: IMIQUIMOD
Active Ingredient: IMIQUIMOD
Strength: 5%
Dosage Form/Route: CREAM;TOPICAL
Application: A202002 | Product #001
Applicant: STRIDES PHARMA GLOBAL PTE LTD
Approved: Jun 24, 2014 | RLD: No | RS: No | Type: DISCN